FAERS Safety Report 6930166-0 (Version None)
Quarter: 2010Q3

REPORT INFORMATION
  Report Type: 
  Country: None (occurrence: None)
  Receive Date: 20100818
  Receipt Date: 20100806
  Transmission Date: 20110219
  Serious: Yes (Other)
  Sender: FDA-Public Use
  Company Number: US-PFIZER INC-2010100189

PATIENT
  Sex: Male

DRUGS (4)
  1. ZYVOX [Suspect]
     Indication: ENTEROCOCCAL INFECTION
     Dosage: 600 MG, 2X/DAY
     Route: 042
     Dates: start: 20100601
  2. ZYVOX [Suspect]
     Indication: OSTEOMYELITIS
  3. TACROLIMUS [Concomitant]
     Dosage: UNK
  4. MYCOPHENOLATE MOFETIL [Concomitant]
     Dosage: UNK

REACTIONS (1)
  - PANCYTOPENIA [None]
